FAERS Safety Report 11072927 (Version 5)
Quarter: 2020Q3

REPORT INFORMATION
  Report Type: Report from Study
  Country: TR (occurrence: TR)
  Receive Date: 20150428
  Receipt Date: 20151113
  Transmission Date: 20201104
  Serious: Yes (Life-Threatening, Hospitalization)
  Sender: FDA-Public Use
  Company Number: TR-JNJFOC-20140922064

PATIENT
  Age: 67 Year
  Sex: Male
  Weight: 73 kg

DRUGS (35)
  1. RITUXIMAB. [Suspect]
     Active Substance: RITUXIMAB
     Indication: CHRONIC LYMPHOCYTIC LEUKAEMIA
     Route: 042
     Dates: start: 20131218, end: 20140508
  2. AMIJEKSIN [Concomitant]
     Indication: INFECTION PROPHYLAXIS
     Route: 042
     Dates: start: 20141029, end: 20141208
  3. AMINO ACIDS NOS W/GLYCEROL [Concomitant]
     Route: 042
     Dates: start: 20141029, end: 20150127
  4. GADEXON [Concomitant]
     Route: 042
     Dates: start: 20141029, end: 20141111
  5. FAMODIN [Concomitant]
     Active Substance: FAMOTIDINE
     Route: 048
     Dates: start: 20141029, end: 20141106
  6. ATROPINE SULFATE. [Concomitant]
     Active Substance: ATROPINE SULFATE
     Route: 042
     Dates: start: 20141029, end: 20141201
  7. DEPAKIN [Concomitant]
     Active Substance: VALPROATE SODIUM
     Route: 042
     Dates: start: 20141029, end: 20150104
  8. CEZOL [Concomitant]
     Indication: INFECTION PROPHYLAXIS
     Route: 042
     Dates: start: 20141029, end: 20141201
  9. SEVORANE [Concomitant]
     Active Substance: SEVOFLURANE
     Indication: INDUCTION OF ANAESTHESIA
     Route: 055
     Dates: start: 20141029, end: 20141103
  10. TALINAT [Concomitant]
     Indication: ANALGESIC THERAPY
     Route: 042
     Dates: start: 20141029, end: 20141201
  11. RITUXIMAB. [Suspect]
     Active Substance: RITUXIMAB
     Indication: LYMPHOCYTIC LEUKAEMIA
     Route: 042
     Dates: start: 20131218, end: 20140508
  12. LANSOPROL [Concomitant]
     Indication: GASTROINTESTINAL DISORDER THERAPY
     Route: 048
     Dates: start: 20141029, end: 20150805
  13. N ACETYLCYSTEINE [Concomitant]
     Active Substance: ACETYLCYSTEINE
     Route: 048
  14. EQICEFT [Concomitant]
     Route: 042
     Dates: start: 20141019, end: 20141124
  15. BENDAMUSTINE [Suspect]
     Active Substance: BENDAMUSTINE
     Indication: LYMPHOCYTIC LEUKAEMIA
     Route: 042
     Dates: start: 20131219, end: 20140509
  16. DIAZEPAM. [Concomitant]
     Active Substance: DIAZEPAM
     Route: 042
     Dates: start: 20141029, end: 20141130
  17. DIKLORON [Concomitant]
     Route: 042
     Dates: start: 20141029, end: 20141106
  18. MAGNEVIST [Concomitant]
     Active Substance: GADOPENTETATE DIMEGLUMINE
     Route: 042
     Dates: start: 20141029, end: 20141130
  19. PARACETAMOL [Concomitant]
     Active Substance: ACETAMINOPHEN
     Route: 048
  20. NEVOFAM [Concomitant]
     Indication: PROPHYLAXIS
     Route: 048
     Dates: start: 20141019, end: 20141028
  21. IZOLEN M DEKSTROZLU SOLUSYON, POLIFLEKS [Concomitant]
     Route: 042
     Dates: start: 20141029, end: 20141106
  22. DEMIZOLAM [Concomitant]
     Route: 042
     Dates: start: 20141029, end: 20150127
  23. VECURONIUM BROMIDE. [Concomitant]
     Active Substance: VECURONIUM BROMIDE
     Route: 042
     Dates: start: 20141029, end: 20141103
  24. IBRUTINIB [Suspect]
     Active Substance: IBRUTINIB
     Indication: LYMPHOCYTIC LEUKAEMIA
     Route: 048
     Dates: start: 20131219, end: 20140923
  25. BENDAMUSTINE [Suspect]
     Active Substance: BENDAMUSTINE
     Indication: CHRONIC LYMPHOCYTIC LEUKAEMIA
     Route: 042
     Dates: start: 20131219, end: 20140509
  26. DEGASTROL [Concomitant]
     Indication: GASTROINTESTINAL DISORDER THERAPY
     Route: 048
     Dates: start: 20141029, end: 20141125
  27. PAROL [Concomitant]
     Active Substance: ACETAMINOPHEN
     Indication: ANTIPYRESIS
     Route: 048
     Dates: start: 20140919, end: 20140919
  28. FLOMAX [Concomitant]
     Active Substance: TAMSULOSIN HYDROCHLORIDE
     Indication: POLLAKIURIA
     Dates: start: 20140613
  29. FAMOTIDINE. [Concomitant]
     Active Substance: FAMOTIDINE
     Route: 048
  30. PAROL [Concomitant]
     Active Substance: ACETAMINOPHEN
     Indication: ANTIPYRESIS
     Route: 048
     Dates: start: 20141029, end: 20150103
  31. BACTRIM [Concomitant]
     Active Substance: SULFAMETHOXAZOLE\TRIMETHOPRIM
     Indication: PROPHYLAXIS
     Route: 048
     Dates: start: 20140310
  32. IBRUTINIB [Suspect]
     Active Substance: IBRUTINIB
     Indication: CHRONIC LYMPHOCYTIC LEUKAEMIA
     Route: 048
     Dates: start: 20131219, end: 20140923
  33. LEVOFLOXACIN. [Concomitant]
     Active Substance: LEVOFLOXACIN
     Route: 048
     Dates: start: 20140919, end: 20140923
  34. NEOSTIGMINE. [Concomitant]
     Active Substance: NEOSTIGMINE METHYLSULFATE
     Route: 042
     Dates: start: 20141029, end: 20141201
  35. THIOPENTAL SODIUM. [Concomitant]
     Active Substance: THIOPENTAL SODIUM
     Route: 042
     Dates: start: 20141029, end: 20141201

REACTIONS (2)
  - Central nervous system infection [Recovered/Resolved]
  - Haemorrhage intracranial [Recovered/Resolved]

NARRATIVE: CASE EVENT DATE: 20140922
